FAERS Safety Report 6961560-X (Version None)
Quarter: 2010Q3

REPORT INFORMATION
  Report Type: 
  Country: None (occurrence: None)
  Receive Date: 20100901
  Receipt Date: 20100824
  Transmission Date: 20110219
  Serious: Yes (Hospitalization, Other)
  Sender: FDA-Public Use
  Company Number: US-AMGEN-QUU433577

PATIENT
  Sex: Male
  Weight: 115.8 kg

DRUGS (10)
  1. NEULASTA [Suspect]
     Indication: CHEMOTHERAPY
     Dates: start: 20100630, end: 20100811
  2. DOXORUBICIN HCL [Suspect]
     Dates: start: 20100629, end: 20100811
  3. METHOTREXATE [Suspect]
     Dates: start: 20100628, end: 20100811
  4. VINBLASTINE SULFATE [Suspect]
     Dates: start: 20100629, end: 20100811
  5. CISPLATIN [Suspect]
     Dates: start: 20100629, end: 20100811
  6. METFORMIN [Concomitant]
     Dates: start: 20100523
  7. FERROUS SULFATE [Concomitant]
     Dates: start: 20100523
  8. OXYCODONE [Concomitant]
     Dates: start: 20100712
  9. AMBIEN [Concomitant]
     Dates: start: 20100712
  10. MAGNESIUM OXIDE [Concomitant]
     Dates: start: 20100726

REACTIONS (3)
  - ABSCESS [None]
  - BLOOD GLUCOSE FLUCTUATION [None]
  - WHITE BLOOD CELL COUNT DECREASED [None]
